FAERS Safety Report 24258606 (Version 1)
Quarter: 2024Q3

REPORT INFORMATION
  Report Type: Spontaneous
  Country: US (occurrence: US)
  Receive Date: 20240828
  Receipt Date: 20240828
  Transmission Date: 20241017
  Serious: No
  Sender: TAKEDA
  Company Number: US-TAKEDA-2024TUS083498

PATIENT
  Age: 23 Year
  Sex: Female

DRUGS (8)
  1. VYVANSE [Suspect]
     Active Substance: LISDEXAMFETAMINE DIMESYLATE
     Indication: Product used for unknown indication
     Dosage: UNK
     Route: 065
  2. DUPIXENT [Suspect]
     Active Substance: DUPILUMAB
     Indication: Dermatitis atopic
     Dosage: 600 MILLIGRAM
     Route: 065
     Dates: start: 20180913
  3. DUPIXENT [Suspect]
     Active Substance: DUPILUMAB
     Dosage: 300 MILLIGRAM, Q2WEEKS
     Route: 058
  4. CLOZEPAM [Concomitant]
     Dosage: UNK
     Route: 065
  5. ESCITALOPRAM OXALATE [Concomitant]
     Active Substance: ESCITALOPRAM OXALATE
     Dosage: UNK
  6. TOPIRAMATE [Concomitant]
     Active Substance: TOPIRAMATE
     Dosage: UNK
     Route: 065
  7. CETIRIZINE HYDROCHLORIDE [Concomitant]
     Active Substance: CETIRIZINE HYDROCHLORIDE
     Dosage: UNK
     Route: 065
  8. LAMOTRIGINE [Concomitant]
     Active Substance: LAMOTRIGINE
     Dosage: UNK
     Route: 065

REACTIONS (25)
  - Injection site pain [Not Recovered/Not Resolved]
  - Injection site pruritus [Unknown]
  - Lip dry [Not Recovered/Not Resolved]
  - Dry skin [Not Recovered/Not Resolved]
  - Lip erythema [Unknown]
  - Eczema [Unknown]
  - Wound secretion [Unknown]
  - Skin odour abnormal [Unknown]
  - Scratch [Unknown]
  - Erythema [Unknown]
  - Skin exfoliation [Unknown]
  - Skin fissures [Unknown]
  - Eyelid disorder [Unknown]
  - Discharge [Unknown]
  - Pustule [Unknown]
  - Treatment noncompliance [Unknown]
  - Wrong schedule [Unknown]
  - Drug ineffective [Unknown]
  - Oral mucosal erythema [Unknown]
  - Anger [Unknown]
  - Rash erythematous [Unknown]
  - Anxiety [Unknown]
  - Depression [Unknown]
  - Dry mouth [Unknown]
  - Rash [Unknown]

NARRATIVE: CASE EVENT DATE: 20190301
